FAERS Safety Report 20404013 (Version 1)
Quarter: 2022Q1

REPORT INFORMATION
  Report Type: Spontaneous
  Country: CA (occurrence: CA)
  Receive Date: 20220131
  Receipt Date: 20220131
  Transmission Date: 20220423
  Serious: Yes (Hospitalization, Other)
  Sender: FDA-Public Use
  Company Number: CA-LEADINGPHARMA-CA-2022LEALIT00012

PATIENT
  Sex: Male

DRUGS (5)
  1. BENZTROPINE MESYLATE [Suspect]
     Active Substance: BENZTROPINE MESYLATE
     Indication: Depression
     Route: 048
  2. PAROXETINE [Suspect]
     Active Substance: PAROXETINE
     Indication: Depression
     Route: 065
  3. PAROXETINE [Suspect]
     Active Substance: PAROXETINE
     Route: 065
  4. ASENAPINE [Suspect]
     Active Substance: ASENAPINE
     Indication: Depression
     Route: 048
  5. ASENAPINE [Suspect]
     Active Substance: ASENAPINE
     Route: 048

REACTIONS (1)
  - Anticholinergic syndrome [Unknown]
